FAERS Safety Report 19442602 (Version 2)
Quarter: 2021Q3

REPORT INFORMATION
  Report Type: Spontaneous
  Country: US (occurrence: US)
  Receive Date: 20210621
  Receipt Date: 20210701
  Transmission Date: 20211014
  Serious: No
  Sender: FDA-Public Use
  Company Number: US-PFIZER INC-2021289738

PATIENT
  Age: 45 Year
  Sex: Female
  Weight: 109 kg

DRUGS (1)
  1. BOSULIF [Suspect]
     Active Substance: BOSUTINIB MONOHYDRATE
     Indication: CHRONIC MYELOID LEUKAEMIA
     Dosage: 300 MG, 1X/DAY
     Route: 048
     Dates: start: 20210308

REACTIONS (6)
  - Dyspnoea [Unknown]
  - Liver disorder [Unknown]
  - Diarrhoea [Unknown]
  - Neck pain [Unknown]
  - Pain in extremity [Unknown]
  - Insomnia [Unknown]

NARRATIVE: CASE EVENT DATE: 202103
